FAERS Safety Report 5661075-5 (Version None)
Quarter: 2008Q1

REPORT INFORMATION
  Report Type: 
  Country: None (occurrence: None)
  Receive Date: 20080204
  Receipt Date: 20071214
  Transmission Date: 20080703
  Serious: Yes (Other)
  Sender: FDA-Public Use
  Company Number: PHEH2007US15200

PATIENT
  Age: 68 Year
  Sex: Male

DRUGS (6)
  1. EXELON [Suspect]
     Indication: DEMENTIA
     Dosage: 4.6 MG, QD ; 9.5 MG/24H/D
     Dates: end: 20071101
  2. EXELON [Suspect]
     Indication: DEMENTIA
     Dosage: 4.6 MG, QD ; 9.5 MG/24H/D
     Dates: start: 20071001
  3. MIRAPEX [Concomitant]
  4. SEROQUEL [Concomitant]
  5. STAVELO (CARBIDOPA, ENTACAPONE, LEVODOPA) [Concomitant]
  6. AZILECT (RASAGILINE MESYLATE) [Concomitant]

REACTIONS (2)
  - CONFUSIONAL STATE [None]
  - HALLUCINATION, VISUAL [None]
